FAERS Safety Report 25487623 (Version 2)
Quarter: 2025Q3

REPORT INFORMATION
  Report Type: Spontaneous
  Country: GB (occurrence: GB)
  Receive Date: 20250627
  Receipt Date: 20250710
  Transmission Date: 20251021
  Serious: Yes (Death, Other)
  Sender: ASTELLAS
  Company Number: GB-MHRA-WEBRADR-202506251040187280-NGDYP

PATIENT
  Age: 75 Year
  Sex: Male
  Weight: 92 kg

DRUGS (3)
  1. XTANDI [Suspect]
     Active Substance: ENZALUTAMIDE
     Indication: Prostate cancer
     Route: 048
     Dates: start: 20250503, end: 20250615
  2. FOLIC ACID [Concomitant]
     Active Substance: FOLIC ACID
     Indication: Product used for unknown indication
     Route: 065
  3. RAMIPRIL [Concomitant]
     Active Substance: RAMIPRIL
     Indication: Blood pressure fluctuation
     Route: 065

REACTIONS (2)
  - Cerebrovascular accident [Fatal]
  - Dizziness [Recovered/Resolved]

NARRATIVE: CASE EVENT DATE: 20250610
